FAERS Safety Report 11453057 (Version 1)
Quarter: 2015Q3

REPORT INFORMATION
  Report Type: Spontaneous
  Country: US (occurrence: US)
  Receive Date: 20150831
  Receipt Date: 20150831
  Transmission Date: 20151125
  Serious: Yes (Other)
  Sender: FDA-Public Use
  Company Number: US-ELI_LILLY_AND_COMPANY-US200909003499

PATIENT
  Sex: Female

DRUGS (4)
  1. CYMBALTA [Suspect]
     Active Substance: DULOXETINE HYDROCHLORIDE
     Dosage: 60 MG, UNK
  2. ZONEGRAN [Concomitant]
     Active Substance: ZONISAMIDE
     Indication: SEIZURE
     Dosage: 300 MG, UNK
  3. CYMBALTA [Suspect]
     Active Substance: DULOXETINE HYDROCHLORIDE
     Indication: DEPRESSION
     Dosage: 30 MG, UNK
  4. ZARONTIN [Concomitant]
     Active Substance: ETHOSUXIMIDE
     Indication: SEIZURE

REACTIONS (2)
  - Anticonvulsant drug level below therapeutic [Recovering/Resolving]
  - Seizure [Unknown]
